FAERS Safety Report 16054581 (Version 3)
Quarter: 2021Q2

REPORT INFORMATION
  Report Type: Report from Study
  Country: US (occurrence: US)
  Receive Date: 20190309
  Receipt Date: 20210401
  Transmission Date: 20210716
  Serious: Yes (Hospitalization, Other)
  Sender: FDA-Public Use
  Company Number: PHEH2019US009976

PATIENT
  Age: 61 Year
  Sex: Female

DRUGS (1)
  1. GILENYA [Suspect]
     Active Substance: FINGOLIMOD HYDROCHLORIDE
     Indication: PRODUCT USED FOR UNKNOWN INDICATION
     Dosage: 0.5 MG
     Route: 048

REACTIONS (9)
  - Haemoglobin decreased [Unknown]
  - Hypotension [Unknown]
  - Manufacturing product shipping issue [Unknown]
  - Fall [Unknown]
  - Limb injury [Unknown]
  - Head injury [Unknown]
  - Contusion [Unknown]
  - Haemorrhage [Unknown]
  - Multiple sclerosis [Unknown]

NARRATIVE: CASE EVENT DATE: 20190301
